FAERS Safety Report 16469981 (Version 3)
Quarter: 2019Q3

REPORT INFORMATION
  Report Type: Report from Study
  Country: IT (occurrence: IT)
  Receive Date: 20190624
  Receipt Date: 20190801
  Transmission Date: 20191004
  Serious: Yes (Other)
  Sender: FDA-Public Use
  Company Number: IT-PFIZER INC-2019263762

PATIENT
  Age: 77 Year
  Sex: Female

DRUGS (3)
  1. ATORVASTATIN CALCIUM. [Suspect]
     Active Substance: ATORVASTATIN CALCIUM
     Indication: ATRIAL FIBRILLATION
     Dosage: UNK
  2. ESOMEPRAZOLE MAGNESIUM. [Interacting]
     Active Substance: ESOMEPRAZOLE MAGNESIUM
     Dosage: UNK
  3. WARFARIN [Interacting]
     Active Substance: WARFARIN
     Dosage: UNK

REACTIONS (2)
  - Muscle haemorrhage [Unknown]
  - Drug interaction [Unknown]
